FAERS Safety Report 18599934 (Version 2)
Quarter: 2021Q1

REPORT INFORMATION
  Report Type: Spontaneous
  Country: US (occurrence: US)
  Receive Date: 20201210
  Receipt Date: 20210115
  Transmission Date: 20210419
  Serious: Yes (Other)
  Sender: FDA-Public Use
  Company Number: US-ASTRAZENECA-2020SF60211

PATIENT
  Sex: Female
  Weight: 56.7 kg

DRUGS (3)
  1. LASIX [Concomitant]
     Active Substance: FUROSEMIDE
     Indication: PERIPHERAL SWELLING
     Route: 048
  2. SYMBICORT [Suspect]
     Active Substance: BUDESONIDE\FORMOTEROL FUMARATE DIHYDRATE
     Indication: ASTHMA
     Dosage: 80 OF 4.5 MCG, TWO INHALATIONS TWICE A DAY
     Route: 055
  3. LASIX [Concomitant]
     Active Substance: FUROSEMIDE
     Indication: LIPOEDEMA
     Route: 048

REACTIONS (3)
  - Dementia Alzheimer^s type [Not Recovered/Not Resolved]
  - Drug delivery system malfunction [Unknown]
  - Dementia [Not Recovered/Not Resolved]
